FAERS Safety Report 8285637-4 (Version None)
Quarter: 2012Q2

REPORT INFORMATION
  Report Type: 
  Country: None (occurrence: None)
  Receive Date: 20120413
  Receipt Date: 20111208
  Transmission Date: 20120825
  Serious: No
  Sender: FDA-Public Use
  Company Number: US-ASTRAZENECA-2010SE22188

PATIENT
  Age: 51 Year
  Sex: Female
  Weight: 81.6 kg

DRUGS (5)
  1. SEROQUEL XR [Suspect]
     Indication: BIPOLAR DISORDER
     Route: 048
  2. NEXIUM [Suspect]
     Route: 048
  3. CRESTOR [Suspect]
     Route: 048
  4. VITAMIN TAB [Concomitant]
  5. OTHER MEDICATIONS [Concomitant]

REACTIONS (9)
  - INFLUENZA LIKE ILLNESS [None]
  - PERSONALITY CHANGE [None]
  - BODY HEIGHT DECREASED [None]
  - ARTHRALGIA [None]
  - BRONCHITIS [None]
  - CRYING [None]
  - DRUG DOSE OMISSION [None]
  - IMPULSIVE BEHAVIOUR [None]
  - INSOMNIA [None]
